FAERS Safety Report 20604651 (Version 2)
Quarter: 2022Q1

REPORT INFORMATION
  Report Type: Report from Study
  Country: KR (occurrence: KR)
  Receive Date: 20220316
  Receipt Date: 20220322
  Transmission Date: 20220424
  Serious: Yes (Death, Life-Threatening, Hospitalization, Other)
  Sender: FDA-Public Use
  Company Number: KR-ABBVIE-22K-090-4318332-00

PATIENT
  Age: 75 Year
  Sex: Male
  Weight: 86.4 kg

DRUGS (51)
  1. VENETOCLAX [Suspect]
     Active Substance: VENETOCLAX
     Indication: Acute myeloid leukaemia
     Route: 048
     Dates: start: 20211124, end: 20211124
  2. VENETOCLAX [Suspect]
     Active Substance: VENETOCLAX
     Route: 048
     Dates: start: 20211125, end: 20211125
  3. VENETOCLAX [Suspect]
     Active Substance: VENETOCLAX
     Route: 048
     Dates: start: 20211126, end: 20211126
  4. VENETOCLAX [Suspect]
     Active Substance: VENETOCLAX
     Route: 048
     Dates: start: 20211127, end: 20211221
  5. VENETOCLAX [Suspect]
     Active Substance: VENETOCLAX
     Route: 048
     Dates: start: 20220203, end: 20220302
  6. VIZADAKIN [Concomitant]
     Indication: Acute myeloid leukaemia
     Route: 042
     Dates: start: 20211124, end: 20211130
  7. VIZADAKIN [Concomitant]
     Route: 042
     Dates: start: 20220203, end: 20220209
  8. FASTURTEC [Concomitant]
     Active Substance: RASBURICASE
     Indication: Prophylaxis
     Route: 042
     Dates: start: 20211122, end: 20211122
  9. ALLOPURINOL [Concomitant]
     Active Substance: ALLOPURINOL
     Indication: Prophylaxis
     Route: 048
     Dates: start: 20211122, end: 20211210
  10. ALLOPURINOL [Concomitant]
     Active Substance: ALLOPURINOL
     Route: 048
     Dates: start: 20220203
  11. FASTURTEC [Concomitant]
     Active Substance: RASBURICASE
     Indication: Prophylaxis
     Route: 042
     Dates: start: 20220207, end: 20220207
  12. ALLOPURINOL [Concomitant]
     Active Substance: ALLOPURINOL
     Indication: Prophylaxis
     Route: 048
     Dates: start: 20220310, end: 20220313
  13. HYDRINE [Concomitant]
     Indication: Acute myeloid leukaemia
     Route: 048
     Dates: start: 20211122, end: 20211125
  14. MAGNESIUM HYDROXIDE [Concomitant]
     Active Substance: MAGNESIUM HYDROXIDE
     Indication: Constipation
     Route: 048
     Dates: start: 20211122, end: 20211129
  15. NORVASC [Concomitant]
     Active Substance: AMLODIPINE BESYLATE
     Indication: Hypertension
     Route: 048
     Dates: start: 20211122, end: 20220302
  16. OLMESARTAN MEDOXOMIL [Concomitant]
     Active Substance: OLMESARTAN MEDOXOMIL
     Indication: Hypertension
     Route: 048
     Dates: start: 20211122, end: 20220208
  17. ULTRACET ER SEMI [Concomitant]
     Indication: Back pain
     Route: 048
     Dates: start: 20211121, end: 20220214
  18. PROPACETAMOL HYDROCHLORIDE [Concomitant]
     Active Substance: PROPACETAMOL HYDROCHLORIDE
     Indication: Pyrexia
     Route: 042
     Dates: start: 20211121, end: 20211129
  19. MAXIPIME [Concomitant]
     Active Substance: CEFEPIME HYDROCHLORIDE
     Indication: Pyrexia
     Route: 042
     Dates: start: 20211120, end: 20211201
  20. NOXAFIL [Concomitant]
     Active Substance: POSACONAZOLE
     Indication: Prophylaxis
     Route: 048
     Dates: start: 20211124, end: 20211214
  21. VACRAX [Concomitant]
     Indication: Prophylaxis
     Route: 048
     Dates: start: 20211124, end: 20220302
  22. SULFAMETHOXAZOLE\TRIMETHOPRIM [Concomitant]
     Active Substance: SULFAMETHOXAZOLE\TRIMETHOPRIM
     Indication: Prophylaxis
     Route: 048
     Dates: start: 20211124, end: 20220302
  23. PRUCALOPRIDE SUCCINATE [Concomitant]
     Active Substance: PRUCALOPRIDE SUCCINATE
     Indication: Constipation
     Route: 048
     Dates: start: 20211124, end: 20220302
  24. RAMOSETRON HYDROCHLORIDE [Concomitant]
     Active Substance: RAMOSETRON HYDROCHLORIDE
     Indication: Prophylaxis
     Route: 048
     Dates: start: 20211124, end: 20220209
  25. HEPA-MERZ [Concomitant]
     Indication: Liver function test increased
     Dosage: 500MG/5ML
     Route: 042
     Dates: start: 20211125, end: 20211202
  26. DULCOLAX NOS [Concomitant]
     Active Substance: BISACODYL OR DOCUSATE SODIUM
     Indication: Constipation
     Route: 054
     Dates: start: 20211125, end: 20211129
  27. METOCLOPRAMIDE HYDROCHLORIDE [Concomitant]
     Active Substance: METOCLOPRAMIDE HYDROCHLORIDE
     Indication: Constipation
     Route: 042
     Dates: start: 20211126, end: 20211130
  28. FLUTICASONE FUROATE\VILANTEROL TRIFENATATE [Concomitant]
     Active Substance: FLUTICASONE FUROATE\VILANTEROL TRIFENATATE
     Indication: Asthma
     Dosage: PRN
     Route: 055
     Dates: start: 20211126, end: 20220302
  29. SINGULAIR [Concomitant]
     Active Substance: MONTELUKAST SODIUM
     Indication: Asthma
     Route: 048
     Dates: start: 20211129, end: 20220302
  30. LEVOFLOXACIN [Concomitant]
     Active Substance: LEVOFLOXACIN
     Indication: Prophylaxis
     Route: 048
     Dates: start: 20211202, end: 20220302
  31. AGIO [Concomitant]
     Indication: Constipation
     Dosage: PRN
     Route: 048
     Dates: start: 20211128, end: 20211225
  32. OMAPONE PERI [Concomitant]
     Indication: Decreased appetite
     Route: 042
     Dates: start: 20211214, end: 20211217
  33. HARNAL [Concomitant]
     Active Substance: TAMSULOSIN HYDROCHLORIDE
     Indication: Benign prostatic hyperplasia
     Route: 048
     Dates: start: 20211215, end: 20220209
  34. FOLIC ACID [Concomitant]
     Active Substance: FOLIC ACID
     Indication: Anaemia
     Route: 048
     Dates: start: 20220104, end: 20220118
  35. NALOXONE HYDROCHLORIDE\OXYCODONE HYDROCHLORIDE [Concomitant]
     Active Substance: NALOXONE HYDROCHLORIDE\OXYCODONE HYDROCHLORIDE
     Indication: Pain in extremity
     Dosage: 5/2.5MG
     Route: 048
     Dates: start: 20220112, end: 20220209
  36. DIFLUCAN [Concomitant]
     Active Substance: FLUCONAZOLE
     Indication: Prophylaxis
     Route: 048
     Dates: start: 20211222, end: 20220302
  37. COMP URSA [Concomitant]
     Indication: Gamma-glutamyltransferase increased
     Route: 048
     Dates: start: 20220204, end: 20220214
  38. GODEX [Concomitant]
     Indication: Gamma-glutamyltransferase increased
     Route: 048
     Dates: start: 20220204, end: 20220214
  39. PROPACETAMOL HYDROCHLORIDE [Concomitant]
     Active Substance: PROPACETAMOL HYDROCHLORIDE
     Indication: Pyrexia
     Route: 042
     Dates: start: 20220203, end: 20220206
  40. MAXIPIME [Concomitant]
     Active Substance: CEFEPIME HYDROCHLORIDE
     Indication: Pyrexia
     Route: 042
     Dates: start: 20220204, end: 20220209
  41. VANCOCIN CP [Concomitant]
     Indication: Pyrexia
     Route: 042
     Dates: start: 20220207, end: 20220209
  42. HYDRINE [Concomitant]
     Indication: Acute myeloid leukaemia
     Route: 042
     Dates: start: 20220310, end: 20220312
  43. PROPACETAMOL HYDROCHLORIDE [Concomitant]
     Active Substance: PROPACETAMOL HYDROCHLORIDE
     Indication: Pyrexia
     Route: 042
     Dates: start: 20220310, end: 20220315
  44. MAXIPIME [Concomitant]
     Active Substance: CEFEPIME HYDROCHLORIDE
     Indication: Pyrexia
     Route: 042
     Dates: start: 20220310, end: 20220314
  45. FURTMAN [Concomitant]
     Indication: Prophylaxis
     Route: 042
     Dates: start: 20220310, end: 20220313
  46. ACETYLCYSTEINE [Concomitant]
     Active Substance: ACETYLCYSTEINE
     Indication: Prophylaxis
     Dosage: 100MG/ML 3ML/A
     Route: 042
     Dates: start: 20220310, end: 20220314
  47. VITAMINS [Concomitant]
     Active Substance: VITAMINS
     Indication: Prophylaxis
     Dosage: 1 VIAL
     Route: 042
     Dates: start: 20220310, end: 20220313
  48. TYLICOL [Concomitant]
     Indication: Product used for unknown indication
     Route: 042
     Dates: start: 20220310, end: 20220315
  49. LASIX [Concomitant]
     Active Substance: FUROSEMIDE
     Indication: Blood creatine increased
     Route: 042
     Dates: start: 20220311, end: 20220313
  50. HEPA MERZ [Concomitant]
     Indication: Liver function test increased
     Dosage: 500MG/5ML
     Route: 042
     Dates: start: 20220311, end: 20220313
  51. K [Concomitant]
     Indication: Blood potassium decreased
     Dosage: 1BOTTLE?20MEQ/NS100 ML
     Route: 042
     Dates: start: 20211124, end: 20211127

REACTIONS (1)
  - Cerebral infarction [Fatal]

NARRATIVE: CASE EVENT DATE: 20220310
